FAERS Safety Report 10771401 (Version 2)
Quarter: 2015Q1

REPORT INFORMATION
  Report Type: Spontaneous
  Country: EC (occurrence: EC)
  Receive Date: 20150206
  Receipt Date: 20150213
  Transmission Date: 20150721
  Serious: Yes (Death, Other)
  Sender: FDA-Public Use
  Company Number: EC-GLAXOSMITHKLINE-EC2015GSK014967

PATIENT
  Age: 50 Year
  Sex: Male
  Weight: 85 kg

DRUGS (1)
  1. ZINNAT [Suspect]
     Active Substance: CEFUROXIME AXETIL
     Indication: INFECTION PROPHYLAXIS
     Dosage: 750 MG, UNK
     Route: 042
     Dates: start: 20150204, end: 20150204

REACTIONS (3)
  - Myocardial infarction [Fatal]
  - Injection site pain [Unknown]
  - Syncope [Unknown]

NARRATIVE: CASE EVENT DATE: 20150204
